FAERS Safety Report 9908118 (Version 1)
Quarter: 2013Q2

REPORT INFORMATION
  Report Type: Spontaneous
  Country: US (occurrence: None)
  Receive Date: 20130305
  Receipt Date: 20130305
  Transmission Date: 20140414
  Serious: Yes (Hospitalization)
  Sender: FDA-Public Use
  Company Number: 163-21880-10241867

PATIENT
  Age: 66 Year
  Sex: Female

DRUGS (69)
  1. REVLIMID (LENALIDOMIDE) (5 MILLIGRAM, CAPSULES) [Suspect]
     Indication: MYELODYSPLASTIC SYNDROME
     Dosage: 5 MG, 1 IN 1 D, PO
     Route: 048
     Dates: start: 20120321, end: 20120328
  2. PROCRIT (ERYTHOPOIETIN) (UNKNOWN) [Concomitant]
  3. TRANSFUSION (UNKNOWN) [Concomitant]
  4. ACETAMINOPHEN (PARACETAMOL) (SOLUTION) [Concomitant]
  5. ALBUETEROL SULFATE (SALBUTAMOL SULFATE) (0.083 PERCENT)? [Concomitant]
  6. ALPRAZOLAM (ALPRAZOLAM) (TABLETS) [Concomitant]
  7. ALTEPLASE (ALTEPLASE) (SOLUTION) [Concomitant]
  8. AMIODARONE HCL (AMIDARONE HYDROCHLORIDE) (SOLUTION) [Concomitant]
  9. AZTREONAM IN DEXTROSE (AZTREONAM) (UNKNOWN) [Concomitant]
  10. BENZONATATE (BENZONATATE) (CAPSULES) [Concomitant]
  11. BISACODYL (BISACODYL) (SUPPOSITORY) [Concomitant]
  12. BUPROPION HCL (BUPROPION HYDROCHLORIDE) (SUSTAINED-RELEASE TABLET) [Concomitant]
  13. CALCIUM CARBONATE (CALCIUM CARBONATE) (CHEWABLE TABLET) [Concomitant]
  14. CALCIUM CARBONATE-VITAMIN D3 (LEKOVIT CA) (TABLETS) [Concomitant]
  15. CALCIUM (GLUCONATE (CALCIUM GLUCONATE) (SOLUTION) [Concomitant]
  16. TUSSIONEX PENNKINETIC (TUSSIONEX PENNKINETIC) [Concomitant]
  17. CHLOLECALCIFEROL (COLECALCIFEROL) (TABLETS) [Concomitant]
  18. COLLAGENASE (COLLAGENASE) (UNKNOWN) [Concomitant]
  19. D5-NS W/KCL (GALENIC / GLUCOSE/SODIUM CL/POTASSIUM CL/) (SOLUTION) [Concomitant]
  20. DEXTROSE (GLUCOSE) (GEL) [Concomitant]
  21. DIGOXIN (DIGOXIN) (TABLETS) [Concomitant]
  22. DILTIAZEM (DILTIAZEM) (TABLETS) [Concomitant]
  23. DIPHENHYDRAMINE HCL (DIPHENHYDRAMINE HYDROCHLORIDE) (TABLETS)? [Concomitant]
  24. DORIPENEM (DORIPENEM) [Concomitant]
  25. ENOXAPARIN SODIUM (HEPARIN-FRACTION, SODIUM SALT) (INJECTION) [Concomitant]
  26. EPINEPHIRINE HCL (EPINEPHRINE HYDROCHLORIDE) (INJECTION) [Concomitant]
  27. EPOETIN ALFA (EPOETIN ALFA) (INJECTION) [Concomitant]
  28. ERTAPENEM ADV (ERTAPENEM) [Concomitant]
  29. FENTANYL CITRATE (FENTANYL CITRATE) (SOLUTION)? [Concomitant]
  30. FIDAXOMICIN (FIDAXOMICIN) (TABLETS) [Concomitant]
  31. FUROSEMIDE (FUROSEMIDE) (TABLETS) [Concomitant]
  32. GABAPENTIN (GABAPENTIN) (CAPSULES) [Concomitant]
  33. GLUCAGON (GLUCAGON) (INJECTION) [Concomitant]
  34. HEPARIN IN NS (HEPARIN SODIUM) [Concomitant]
  35. HYDROCORTISONE (HYDROCORTISONE) (TABLETS) [Concomitant]
  36. INSULIN LISPRO (INSULIN LISPRO) (INJECTION) [Concomitant]
  37. INSULIN REGULAR HUMAN (INSULIN HUMAN) (INJECTION) [Concomitant]
  38. IPRATROPIUM BROMIDE (IPRATROPIUM BROMIDE) [Concomitant]
  39. K-PHOS-NEUTROL (SODIUM W/ POTASSIUM PHOSPHATE) (TABLETS) [Concomitant]
  40. KETOROLAC TROMETHAMINE (KETOROLAC TROMETHAMINE) (SOLUTION) [Concomitant]
  41. FLORA-Q (CAPSULES) [Concomitant]
  42. LACTULOSE (LACTULOSE) (UNKNOWN) [Concomitant]
  43. LEVOTHYROXINE SODIUM (LEVOTHYROXINE SODIUM) (TABLETS) [Concomitant]
  44. MAGNESIUM HYDROXIDE (MAGNESIUM HYDROXIDE) (SUSPENSION) [Concomitant]
  45. MAGNESIUM SULFATE (MAGNESIUM SULFATE) (SOLUTION) [Concomitant]
  46. MEGESTROL (MEGESTROL) (SUSPENSION) [Concomitant]
  47. METHYLPREDNISOLONE (METHYLPREDNISOLONE) (TABLETS) [Concomitant]
  48. METHYLPREDNISOLONE SODIUM SUCCINATE (METHYLPREDNISOLONE SODIUM SUCCINATE) [Concomitant]
  49. METOPROLOL TARTRATE (METOPROLOL TARTRATE) (TABLETS) (METOPROLOL TARTRATE) [Concomitant]
  50. MIDAZOLAM HCL (MIDAZOLAM HYDROCHLORIDE) (SOLUTION) [Concomitant]
  51. MUPIROCIN (MUPIROCIN) (2 PERCENT, OINTMENT) [Concomitant]
  52. ONDANSETRON (ONDANSETRON) (TABLETS) [Concomitant]
  53. OXYCODONE-ACETAMINOPHEN (OXYCOCET) (TABLETS) [Concomitant]
  54. PANTOPRAZOLE SODIUM (PANTOPRAZOLE SODIUM) (TABLETS) [Concomitant]
  55. PHENAZOPYRIDINE HCL (PHENAZOPYRIDINE HYDROCHLORIDE) (TABLETS0 [Concomitant]
  56. PHOS-NAK (PHOS-NAK) (POWDER) [Concomitant]
  57. POTASSIUM CHLORIDE (POTASSIUM CHLORIDE) (UNKNOWN) [Concomitant]
  58. KLOR-CON (POTASSIUM CHLORIDE) [Concomitant]
  59. PREDNISONE (PREDNISONE) (TABLETS) [Concomitant]
  60. SODIUM BICARBONATE (SODIUM BICARBONATE) (4.2 PERCENT, SOLUTION)? [Concomitant]
  61. SODIUM CHLORIDE (SODIUM CHLORIDE) [Concomitant]
  62. SODIUM PHOSPHATE (SODIUM PHOSPHATE) (SOLUTION)? [Concomitant]
  63. SUCRALFATE (SUCRALFATE) (TABLETS) [Concomitant]
  64. TRAMADOL HCL (TRAMADOL HYDROCHLORIDE) (TABLETS)? [Concomitant]
  65. VANCOMYCIN (VANCOMYCIN) (SUSPENSION) [Concomitant]
  66. VANCOMYCIN HCL (VANCOMYCIN HYDROCHORIDE) [Concomitant]
  67. VENLAFAXINE HCL (VENLAFAXINE HYDROCHLORIDE) (TABLETS) [Concomitant]
  68. WARFARIN SODIUM (WARFARIN SODIUM) (TABLETS) [Concomitant]
  69. ZOLPIDEM TARTRATE (ZOLPIDEM TARTRATE) (TABLETS) [Concomitant]

REACTIONS (2)
  - Full blood count decreased [None]
  - Thrombocytopenia [None]
